FAERS Safety Report 7244766-4 (Version None)
Quarter: 2011Q1

REPORT INFORMATION
  Report Type: 
  Country: None (occurrence: None)
  Receive Date: 20110126
  Receipt Date: 20110114
  Transmission Date: 20110831
  Serious: No
  Sender: FDA-Public Use
  Company Number: US-BIOGENIDEC-2011BI002538

PATIENT
  Age: 49 Year
  Sex: Female

DRUGS (1)
  1. TYSABRI [Suspect]
     Indication: MULTIPLE SCLEROSIS
     Route: 042
     Dates: start: 20081201

REACTIONS (5)
  - BASEDOW'S DISEASE [None]
  - CONJUNCTIVITIS INFECTIVE [None]
  - STRESS [None]
  - FUNGAL INFECTION [None]
  - FATIGUE [None]
